FAERS Safety Report 12299094 (Version 1)
Quarter: 2016Q2

REPORT INFORMATION
  Report Type: Spontaneous
  Country: US (occurrence: US)
  Receive Date: 20160425
  Receipt Date: 20160425
  Transmission Date: 20160815
  Serious: No
  Sender: FDA-Public Use
  Company Number: US-BIOGEN-2016BI00215192

PATIENT
  Sex: Female

DRUGS (1)
  1. TECFIDERA [Suspect]
     Active Substance: DIMETHYL FUMARATE
     Indication: MULTIPLE SCLEROSIS
     Dates: start: 20130930, end: 20160327

REACTIONS (5)
  - Insomnia [Unknown]
  - Mobility decreased [Unknown]
  - Gait disturbance [Unknown]
  - Fall [Unknown]
  - Gastrooesophageal reflux disease [Unknown]
